FAERS Safety Report 18708592 (Version 3)
Quarter: 2021Q2

REPORT INFORMATION
  Report Type: Spontaneous
  Country: US (occurrence: US)
  Receive Date: 20210106
  Receipt Date: 20210402
  Transmission Date: 20210717
  Serious: Yes (Death, Life-Threatening, Hospitalization, Other)
  Sender: FDA-Public Use
  Company Number: US-ELI_LILLY_AND_COMPANY-US202101000731

PATIENT
  Age: 69 Year
  Sex: Male
  Weight: 125.3 kg

DRUGS (5)
  1. METHYLPREDNISOLONE. [Concomitant]
     Active Substance: METHYLPREDNISOLONE
     Indication: PRODUCT USED FOR UNKNOWN INDICATION
     Dosage: UNK
     Route: 065
     Dates: start: 20201221
  2. BARICITINIB. [Suspect]
     Active Substance: BARICITINIB
     Indication: COVID-19
     Dosage: 4 MG, DAILY
     Route: 048
     Dates: start: 20201216, end: 20201229
  3. REMDESIVIR. [Concomitant]
     Active Substance: REMDESIVIR
     Indication: PRODUCT USED FOR UNKNOWN INDICATION
     Dosage: UNK
     Route: 065
     Dates: start: 20201216, end: 20201220
  4. DECADRON [Concomitant]
     Active Substance: DEXAMETHASONE
     Indication: PRODUCT USED FOR UNKNOWN INDICATION
     Dosage: UNK
     Route: 065
     Dates: start: 20201215, end: 20201221
  5. PLASMA [Concomitant]
     Active Substance: HUMAN PLASMA
     Indication: PRODUCT USED FOR UNKNOWN INDICATION
     Dosage: UNK
     Route: 065
     Dates: start: 20201216

REACTIONS (10)
  - Hypotension [Unknown]
  - Acute respiratory failure [Unknown]
  - Hypoxia [Unknown]
  - Urinary tract infection [Fatal]
  - Bacteraemia [Fatal]
  - Pleural effusion [Fatal]
  - Septic shock [Fatal]
  - Pneumonia [Fatal]
  - Atrial fibrillation [Fatal]
  - Ventricular extrasystoles [Fatal]

NARRATIVE: CASE EVENT DATE: 20201216
